FAERS Safety Report 5544616-8 (Version None)
Quarter: 2007Q4

REPORT INFORMATION
  Report Type: 
  Country: None (occurrence: None)
  Receive Date: 20071210
  Receipt Date: 20070105
  Transmission Date: 20080405
  Serious: No
  Sender: FDA-Public Use
  Company Number: US-AMGEN-KDL205862

PATIENT
  Sex: Female

DRUGS (3)
  1. ENBREL [Suspect]
     Indication: RHEUMATOID ARTHRITIS
     Route: 058
     Dates: start: 20061228
  2. PLAQUENIL [Concomitant]
     Route: 048
     Dates: start: 19970101
  3. METHOTREXATE [Concomitant]
     Route: 048
     Dates: start: 20020101

REACTIONS (4)
  - DIARRHOEA [None]
  - RHINORRHOEA [None]
  - SNEEZING [None]
  - VOMITING [None]
